FAERS Safety Report 14006309 (Version 1)
Quarter: 2017Q3

REPORT INFORMATION
  Report Type: Spontaneous
  Country: US (occurrence: US)
  Receive Date: 20170924
  Receipt Date: 20170924
  Transmission Date: 20171128
  Serious: No
  Sender: FDA-Public Use
  Company Number: US-BIOGEN-2017BV000017

PATIENT
  Age: 37 Year
  Sex: Male

DRUGS (1)
  1. ALPROLIX [Suspect]
     Active Substance: EFTRENONACOG ALFA
     Indication: FACTOR IX DEFICIENCY
     Dosage: EVERY 10-12 DAYS
     Route: 042
     Dates: start: 201412

REACTIONS (2)
  - Gait disturbance [Unknown]
  - Joint injury [Unknown]

NARRATIVE: CASE EVENT DATE: 20170331
